FAERS Safety Report 7677594-6 (Version None)
Quarter: 2011Q3

REPORT INFORMATION
  Report Type: 
  Country: None (occurrence: None)
  Receive Date: 20110811
  Receipt Date: 20110811
  Transmission Date: 20111222
  Serious: No
  Sender: FDA-Public Use
  Company Number: None

PATIENT
  Sex: Male
  Weight: 862.27 kg

DRUGS (2)
  1. IPRATROPIUM BR 0.03% NASAL SPRAY [Concomitant]
     Route: 045
  2. FLUNISOLIDE [Suspect]
     Indication: RHINITIS ALLERGIC
     Dosage: 2 SPRAYS
     Route: 045
     Dates: start: 20101029, end: 20110408

REACTIONS (2)
  - PRODUCT SUBSTITUTION ISSUE [None]
  - EPISTAXIS [None]
